FAERS Safety Report 4315316-7 (Version None)
Quarter: 2004Q1

REPORT INFORMATION
  Report Type: 
  Country: None (occurrence: None)
  Receive Date: 20040310
  Receipt Date: 20040310
  Transmission Date: 20041129
  Serious: Yes (Life-Threatening)
  Sender: FDA-Public Use
  Company Number: None

PATIENT
  Age: 58 Year
  Sex: Male
  Weight: 73.0291 kg

DRUGS (7)
  1. FLEET PHOSPHO-SODA [Suspect]
     Indication: COLONOSCOPY
     Dosage: 1 1/2 OZ PO X 2
     Route: 048
     Dates: start: 20031024
  2. BENCAR [Concomitant]
  3. INDAPAMIDE [Concomitant]
  4. TENORMIN [Concomitant]
  5. SYNTHROID [Concomitant]
  6. ADVICOR [Concomitant]
  7. ALCOHOL [Concomitant]

REACTIONS (2)
  - HYPOKALAEMIA [None]
  - HYPONATRAEMIA [None]
